FAERS Safety Report 9844071 (Version 1)
Quarter: 2014Q1

REPORT INFORMATION
  Report Type: Spontaneous
  Country: US (occurrence: US)
  Receive Date: 20140127
  Receipt Date: 20140127
  Transmission Date: 20141002
  Serious: Yes (Hospitalization)
  Sender: FDA-Public Use
  Company Number: US-ROCHE-1334928

PATIENT
  Sex: Female

DRUGS (2)
  1. RITUXAN [Suspect]
     Indication: MULTIPLE SCLEROSIS
     Route: 065
  2. RITUXAN [Suspect]
     Route: 065
     Dates: start: 2011

REACTIONS (4)
  - Wound [Unknown]
  - Infection [Unknown]
  - White blood cell count increased [Unknown]
  - Multiple sclerosis relapse [Unknown]
